FAERS Safety Report 15608109 (Version 1)
Quarter: 2018Q4

REPORT INFORMATION
  Report Type: Spontaneous
  Country: US (occurrence: US)
  Receive Date: 20181112
  Receipt Date: 20181112
  Transmission Date: 20190205
  Serious: Yes (Hospitalization)
  Sender: FDA-Public Use
  Company Number: None

PATIENT
  Age: 64 Year
  Sex: Male
  Weight: 110.25 kg

DRUGS (1)
  1. LUMASON [Suspect]
     Active Substance: SULFUR HEXAFLUORIDE
     Indication: ECHOCARDIOGRAM
     Dosage: ?          OTHER FREQUENCY:1X FOR ECHO;?
     Route: 042
     Dates: start: 20181108, end: 20181108

REACTIONS (5)
  - Flushing [None]
  - Hypotension [None]
  - Dizziness [None]
  - Drug hypersensitivity [None]
  - Paraesthesia [None]

NARRATIVE: CASE EVENT DATE: 20181108
